FAERS Safety Report 5236419-9 (Version None)
Quarter: 2007Q1

REPORT INFORMATION
  Report Type: 
  Country: None (occurrence: None)
  Receive Date: 20061208
  Receipt Date: 20060802
  Transmission Date: 20070707
  Serious: Yes (Other)
  Sender: FDA-Public Use
  Company Number: 2006UW15471

PATIENT
  Age: 78 Year
  Sex: Female
  Weight: 48.987 kg

DRUGS (5)
  1. CRESTOR [Suspect]
     Indication: BLOOD CHOLESTEROL INCREASED
     Dosage: 10 MG PO
     Route: 048
     Dates: start: 20060601
  2. LOPRESSOR [Concomitant]
  3. DYAZIDE [Concomitant]
  4. PREDNISONE [Concomitant]
  5. VITAMINS [Concomitant]

REACTIONS (2)
  - DIZZINESS [None]
  - SENSATION OF HEAVINESS [None]
